FAERS Safety Report 25052418 (Version 1)
Quarter: 2025Q1

REPORT INFORMATION
  Report Type: Spontaneous
  Country: US (occurrence: US)
  Receive Date: 20250307
  Receipt Date: 20250307
  Transmission Date: 20250409
  Serious: Yes (Hospitalization, Other)
  Sender: VISTAPHARM
  Company Number: US-VISTAPHARM-2025-US-011605

PATIENT
  Age: 31 Month
  Sex: Female

DRUGS (2)
  1. DRONABINOL [Suspect]
     Active Substance: DRONABINOL
     Indication: Product used for unknown indication
  2. METHADONE HYDROCHLORIDE [Suspect]
     Active Substance: METHADONE HYDROCHLORIDE
     Indication: Product used for unknown indication

REACTIONS (2)
  - Brain oedema [Unknown]
  - Neurotoxicity [Unknown]
